FAERS Safety Report 7124715-X (Version None)
Quarter: 2010Q4

REPORT INFORMATION
  Report Type: 
  Country: None (occurrence: None)
  Receive Date: 20101122
  Receipt Date: 20101122
  Transmission Date: 20110411
  Serious: Yes (Death)
  Sender: FDA-Public Use
  Company Number: None

PATIENT
  Age: 75 Year
  Sex: Male
  Weight: 99 kg

DRUGS (14)
  1. TENECTEPLASE 50MG IV GENENTECH [Suspect]
     Indication: ACUTE MYOCARDIAL INFARCTION
     Dosage: 50MG ONCE IV
     Route: 042
     Dates: start: 20101020, end: 20101020
  2. ANGIOMAX [Suspect]
     Indication: PERCUTANEOUS CORONARY INTERVENTION
     Dosage: 15ML BOLUS THEN 35ML/HR IV
     Route: 042
     Dates: start: 20101021, end: 20101021
  3. ASPIRIN [Concomitant]
  4. HEPARIN [Concomitant]
  5. NITROGLYCERIN [Concomitant]
  6. MORPHINE [Concomitant]
  7. HUMALOG [Concomitant]
  8. SUCCINYLCHOLINE CHLORIDE [Concomitant]
  9. ONDANSETRON [Concomitant]
  10. METOPROLOL TARTRATE [Concomitant]
  11. DIAZEPAM [Concomitant]
  12. NICARDIPINE HYDROCHLORIDE [Concomitant]
  13. MANNITOL [Concomitant]
  14. CHLORHEXIDINE MOUTH RINSE [Concomitant]

REACTIONS (9)
  - AREFLEXIA [None]
  - CORNEAL REFLEX DECREASED [None]
  - DEPRESSED LEVEL OF CONSCIOUSNESS [None]
  - HAEMORRHAGE INTRACRANIAL [None]
  - HYPERHIDROSIS [None]
  - MIOSIS [None]
  - NAUSEA [None]
  - OVERDOSE [None]
  - VOMITING [None]
